FAERS Safety Report 16214371 (Version 2)
Quarter: 2019Q4

REPORT INFORMATION
  Report Type: Spontaneous
  Country: US (occurrence: US)
  Receive Date: 20190418
  Receipt Date: 20191029
  Transmission Date: 20200122
  Serious: Yes (Death, Other)
  Sender: FDA-Public Use
  Company Number: US-ASTRAZENECA-2019SE10940

PATIENT
  Sex: Male
  Weight: 88.9 kg

DRUGS (20)
  1. DOXYCYCLINE. [Concomitant]
     Active Substance: DOXYCYCLINE
  2. FUROSEMIDE. [Concomitant]
     Active Substance: FUROSEMIDE
  3. METOCLOPRAMIDE. [Concomitant]
     Active Substance: METOCLOPRAMIDE
  4. EZETIMIBE. [Concomitant]
     Active Substance: EZETIMIBE
  5. SIMVASTATIN. [Concomitant]
     Active Substance: SIMVASTATIN
  6. CYCLOBENZAPRINE. [Concomitant]
     Active Substance: CYCLOBENZAPRINE
  7. CARBIDOPA/ LEVODOPA [Concomitant]
     Active Substance: CARBIDOPA\LEVODOPA
  8. SERTRALINE [Concomitant]
     Active Substance: SERTRALINE HYDROCHLORIDE
  9. ALBUTEROL/IPRATROPIUM [Concomitant]
     Active Substance: ALBUTEROL\IPRATROPIUM
  10. WARFARIN [Concomitant]
     Active Substance: WARFARIN
  11. POTASSIUM [Concomitant]
     Active Substance: POTASSIUM
  12. RANITIDINE. [Concomitant]
     Active Substance: RANITIDINE
  13. NEXIUM [Suspect]
     Active Substance: ESOMEPRAZOLE MAGNESIUM
     Route: 048
     Dates: start: 20091009
  14. NEXIUM [Suspect]
     Active Substance: ESOMEPRAZOLE MAGNESIUM
     Route: 048
  15. COREG [Concomitant]
     Active Substance: CARVEDILOL
  16. TAMSULOSIN [Concomitant]
     Active Substance: TAMSULOSIN
  17. PLAVIX [Concomitant]
     Active Substance: CLOPIDOGREL BISULFATE
  18. BUPROPION. [Concomitant]
     Active Substance: BUPROPION
  19. FOSINOPRIL [Concomitant]
     Active Substance: FOSINOPRIL
  20. TRAZODONE [Concomitant]
     Active Substance: TRAZODONE HYDROCHLORIDE

REACTIONS (8)
  - Sudden cardiac death [Fatal]
  - Chronic kidney disease [Unknown]
  - Mitral valve disease [Fatal]
  - Renal failure [Unknown]
  - Azotaemia [Unknown]
  - Rebound acid hypersecretion [Unknown]
  - Urinary tract obstruction [Fatal]
  - Diabetes mellitus [Fatal]
